FAERS Safety Report 9293723 (Version 1)
Quarter: 2013Q2

REPORT INFORMATION
  Report Type: Spontaneous
  Country: GB (occurrence: GB)
  Receive Date: 20130516
  Receipt Date: 20130516
  Transmission Date: 20140414
  Serious: Yes (Other)
  Sender: FDA-Public Use
  Company Number: GB-TEVA-404340ISR

PATIENT
  Age: 60 Year
  Sex: Female

DRUGS (12)
  1. LEVOTHYROXINE [Suspect]
     Indication: THYROID DISORDER
     Route: 065
  2. CALCICHEW D3 [Concomitant]
  3. SERTRALINE [Concomitant]
     Dosage: 50 MILLIGRAM DAILY;
  4. PREGABALIN [Concomitant]
     Dosage: 25 MILLIGRAM DAILY;
  5. BUSCOPAN [Concomitant]
     Dosage: 30 MILLIGRAM DAILY;
  6. PARACETAMOL [Concomitant]
     Dosage: 3 GRAM DAILY;
  7. ZOLMITRIPTAN [Concomitant]
  8. ZOLPIDEM [Concomitant]
     Dosage: 10 MILLIGRAM DAILY;
  9. SIMVASTATIN [Concomitant]
     Dosage: 20 MILLIGRAM DAILY;
  10. GAVISCON ADVANCE [Concomitant]
  11. OMEPRAZOLE [Concomitant]
     Dosage: 20 MILLIGRAM DAILY;
  12. DIFFLAM [Concomitant]

REACTIONS (9)
  - Depression [Unknown]
  - Anxiety [Unknown]
  - Muscle spasms [Unknown]
  - Tremor [Unknown]
  - Palpitations [Unknown]
  - Asthenia [Unknown]
  - Feeling of body temperature change [Unknown]
  - Dizziness [Unknown]
  - Hyperhidrosis [Unknown]
